FAERS Safety Report 20162220 (Version 1)
Quarter: 2021Q4

REPORT INFORMATION
  Report Type: Spontaneous
  Country: CA (occurrence: CA)
  Receive Date: 20211208
  Receipt Date: 20211208
  Transmission Date: 20220304
  Serious: Yes (Life-Threatening, Hospitalization)
  Sender: FDA-Public Use
  Company Number: CA-TEVA-2021-CA-1984552

PATIENT
  Age: 10 Year
  Sex: Male

DRUGS (6)
  1. HYDROMORPHONE HYDROCHLORIDE [Interacting]
     Active Substance: HYDROMORPHONE HYDROCHLORIDE
     Indication: Pain
     Dosage: 6 MILLIGRAM DAILY;
     Route: 065
  2. IBUPROFEN [Interacting]
     Active Substance: IBUPROFEN
     Indication: Pain
     Dosage: 2400 MILLIGRAM DAILY;
     Route: 048
  3. DDAVP [Interacting]
     Active Substance: DESMOPRESSIN ACETATE
     Indication: Diabetes insipidus
     Dosage: 6.4 MILLIGRAM DAILY;
     Route: 048
  4. DDAVP [Interacting]
     Active Substance: DESMOPRESSIN ACETATE
     Route: 045
  5. SOMATROPIN [Concomitant]
     Active Substance: SOMATROPIN
     Indication: Diabetes insipidus
     Route: 058
  6. HYDROCORTISONE [Concomitant]
     Active Substance: HYDROCORTISONE
     Indication: Diabetes insipidus
     Dosage: 12 MILLIGRAM DAILY;
     Route: 048

REACTIONS (2)
  - Drug interaction [Recovered/Resolved]
  - Hyponatraemia [Recovered/Resolved]
